FAERS Safety Report 4433210-8 (Version None)
Quarter: 2004Q3

REPORT INFORMATION
  Report Type: 
  Country: None (occurrence: None)
  Receive Date: 20040823
  Receipt Date: 20040804
  Transmission Date: 20050211
  Serious: Yes (Other)
  Sender: FDA-Public Use
  Company Number: ENT 2004-0156

PATIENT
  Age: 74 Year
  Sex: Male

DRUGS (4)
  1. COMTAN [Suspect]
     Indication: PARKINSON'S DISEASE
     Dosage: 100 MG 2 TO 3 TIMES/D ORAL
     Route: 048
     Dates: start: 20030601
  2. LEVOPAR [Concomitant]
  3. REQUIP [Concomitant]
  4. SINEMET [Concomitant]

REACTIONS (6)
  - DISORIENTATION [None]
  - EATING DISORDER [None]
  - HALLUCINATIONS, MIXED [None]
  - INCOHERENT [None]
  - PSYCHOTIC DISORDER [None]
  - RESTLESSNESS [None]
